FAERS Safety Report 9527728 (Version 1)
Quarter: 2013Q3

REPORT INFORMATION
  Report Type: Spontaneous
  Country: US (occurrence: None)
  Receive Date: 20130913
  Receipt Date: 20130913
  Transmission Date: 20140515
  Serious: Yes (Life-Threatening, Hospitalization)
  Sender: FDA-Public Use
  Company Number: 2013P1019143

PATIENT
  Age: 65 Year
  Sex: Female

DRUGS (14)
  1. ASPIRIN [Suspect]
     Indication: TRANSIENT ISCHAEMIC ATTACK
     Dosage: MG;  QD
  2. LISINOPRIL [Suspect]
  3. AMLODIPINE [Concomitant]
  4. METOPROLOL TARTRATE [Concomitant]
  5. HYDROCHLOROTHIAZIDE [Concomitant]
  6. SIMVASTATIN [Concomitant]
  7. GLIPIZIDE [Concomitant]
  8. BUPROPION [Concomitant]
  9. ALPRAZOLAM [Concomitant]
  10. METHOCARBAMOL [Concomitant]
  11. CALCIUM WITH VITAMIN D [Concomitant]
  12. IBUPROFEN [Concomitant]
  13. ALBUTEROL [Concomitant]
  14. IODIXANOL [Concomitant]

REACTIONS (6)
  - Respiratory distress [None]
  - Angioedema [None]
  - Pneumonia [None]
  - Haemorrhage [None]
  - Shock [None]
  - Autoimmune disorder [None]
